FAERS Safety Report 9790401 (Version 1)
Quarter: 2013Q4

REPORT INFORMATION
  Report Type: Spontaneous
  Country: NO (occurrence: NO)
  Receive Date: 20131231
  Receipt Date: 20131231
  Transmission Date: 20140711
  Serious: Yes (Death, Other)
  Sender: FDA-Public Use
  Company Number: NO-BAXTER-2013BAX052716

PATIENT
  Age: 18 Year
  Sex: Female

DRUGS (5)
  1. SENDOXAN 1000 MG PULVER TIL INJEKSJONSV?SKE, OPPL?SNING [Suspect]
     Indication: CHEMOTHERAPY
     Dosage: 10400 MG/M2
  2. HOLOXAN 2000 MG, POUDRE POUR USAGE PARENT?RAL [Suspect]
     Indication: CHEMOTHERAPY
     Dosage: 27000 MG/M2
  3. ETOPOSIDE [Suspect]
     Indication: CHEMOTHERAPY
     Dosage: 1500 MG/M2
  4. VINCRISTINE [Suspect]
     Indication: CHEMOTHERAPY
     Dosage: 6 MG/M2, UNK
  5. DORORUBICIN [Suspect]
     Indication: CHEMOTHERAPY
     Dosage: 340 MG/M2

REACTIONS (10)
  - Pulmonary toxicity [Fatal]
  - Acute respiratory distress syndrome [Fatal]
  - Pneumonia [Fatal]
  - Pleural effusion [Fatal]
  - Metastases to lung [Unknown]
  - Therapeutic response decreased [Unknown]
  - Intestinal perforation [Recovered/Resolved]
  - Neutropenia [Recovered/Resolved]
  - Ileus [Recovered/Resolved]
  - Abscess [Recovered/Resolved]
